FAERS Safety Report 18958248 (Version 1)
Quarter: 2021Q1

REPORT INFORMATION
  Report Type: Spontaneous
  Country: CA (occurrence: CA)
  Receive Date: 20210302
  Receipt Date: 20210302
  Transmission Date: 20210420
  Serious: Yes (Other)
  Sender: FDA-Public Use
  Company Number: NVSC2021CA038089

PATIENT
  Age: 56 Year
  Sex: Female
  Weight: 83 kg

DRUGS (13)
  1. ERELZI [Suspect]
     Active Substance: ETANERCEPT-SZZS
     Indication: RHEUMATOID ARTHRITIS
     Dosage: UNK
     Route: 065
  2. RISEDRONATE SODIUM. [Suspect]
     Active Substance: RISEDRONATE SODIUM
     Indication: PRODUCT USED FOR UNKNOWN INDICATION
     Dosage: UNK
     Route: 065
  3. DIPHENHYDRAMINE HYDROCHLORIDE. [Concomitant]
     Active Substance: DIPHENHYDRAMINE HYDROCHLORIDE
     Indication: PRODUCT USED FOR UNKNOWN INDICATION
     Dosage: UNK
     Route: 065
  4. METHYLPREDNISOLONE. [Concomitant]
     Active Substance: METHYLPREDNISOLONE
     Indication: PRODUCT USED FOR UNKNOWN INDICATION
     Dosage: UNK
     Route: 065
  5. PREDNISONE. [Concomitant]
     Active Substance: PREDNISONE
     Indication: PRODUCT USED FOR UNKNOWN INDICATION
     Dosage: UNK
     Route: 065
  6. SOLU?MEDROL [Concomitant]
     Active Substance: METHYLPREDNISOLONE SODIUM SUCCINATE
     Indication: PREMEDICATION
     Dosage: 100 MG
     Route: 042
  7. HYDROMORPHONE [Suspect]
     Active Substance: HYDROMORPHONE
     Indication: PRODUCT USED FOR UNKNOWN INDICATION
     Dosage: UNK
     Route: 065
  8. ACETAMINOPHEN. [Concomitant]
     Active Substance: ACETAMINOPHEN
     Indication: PREMEDICATION
     Dosage: 650 MG
     Route: 048
  9. TRAMACET [Concomitant]
     Active Substance: ACETAMINOPHEN\TRAMADOL
     Indication: PRODUCT USED FOR UNKNOWN INDICATION
     Dosage: UNK (AS REQUIRED)
     Route: 065
  10. TYLENOL [Concomitant]
     Active Substance: ACETAMINOPHEN
     Indication: PREMEDICATION
     Dosage: 650 MG
     Route: 048
  11. RITUXIMAB. [Suspect]
     Active Substance: RITUXIMAB
     Indication: RHEUMATOID ARTHRITIS
     Dosage: 1000 MG
     Route: 042
  12. ACTEMRA [Suspect]
     Active Substance: TOCILIZUMAB
     Indication: PRODUCT USED FOR UNKNOWN INDICATION
     Dosage: 162 MG (1 EVERY 2 WEEKS)
     Route: 058
  13. BENADRYL [Concomitant]
     Active Substance: DIPHENHYDRAMINE HYDROCHLORIDE
     Indication: PREMEDICATION
     Dosage: 50 MG
     Route: 048

REACTIONS (27)
  - Back pain [Not Recovered/Not Resolved]
  - Hypersensitivity [Not Recovered/Not Resolved]
  - Weight increased [Not Recovered/Not Resolved]
  - Drug ineffective [Not Recovered/Not Resolved]
  - Joint swelling [Not Recovered/Not Resolved]
  - Oxygen saturation decreased [Not Recovered/Not Resolved]
  - Rotator cuff syndrome [Not Recovered/Not Resolved]
  - Blood pressure systolic increased [Not Recovered/Not Resolved]
  - Cellulitis [Not Recovered/Not Resolved]
  - Abdominal pain [Not Recovered/Not Resolved]
  - Limb injury [Not Recovered/Not Resolved]
  - Pain [Not Recovered/Not Resolved]
  - Peripheral swelling [Not Recovered/Not Resolved]
  - Blood pressure increased [Not Recovered/Not Resolved]
  - Infusion related reaction [Not Recovered/Not Resolved]
  - Nasal congestion [Not Recovered/Not Resolved]
  - Rheumatoid arthritis [Not Recovered/Not Resolved]
  - Abdominal discomfort [Not Recovered/Not Resolved]
  - Cough [Not Recovered/Not Resolved]
  - Gout [Not Recovered/Not Resolved]
  - Osteopenia [Not Recovered/Not Resolved]
  - Rectal haemorrhage [Not Recovered/Not Resolved]
  - Weight decreased [Not Recovered/Not Resolved]
  - Herpes zoster [Not Recovered/Not Resolved]
  - Arthralgia [Not Recovered/Not Resolved]
  - Oropharyngeal pain [Not Recovered/Not Resolved]
  - Rash [Not Recovered/Not Resolved]
